FAERS Safety Report 12045536 (Version 1)
Quarter: 2016Q1

REPORT INFORMATION
  Report Type: Spontaneous
  Country: US (occurrence: US)
  Receive Date: 20160208
  Receipt Date: 20160208
  Transmission Date: 20160526
  Serious: No
  Sender: FDA-Public Use
  Company Number: US-AEGERION PHARMACEUTICAL INC.-AEGR002278

PATIENT
  Sex: Female
  Weight: 41.59 kg

DRUGS (1)
  1. MYALEPT [Suspect]
     Active Substance: METRELEPTIN
     Indication: LIPODYSTROPHY ACQUIRED
     Dosage: 5 MG, QD
     Route: 058
     Dates: start: 20151006

REACTIONS (4)
  - Weight decreased [Not Recovered/Not Resolved]
  - Blood glucose abnormal [Unknown]
  - Decreased appetite [Not Recovered/Not Resolved]
  - Depression [Unknown]

NARRATIVE: CASE EVENT DATE: 2015
